FAERS Safety Report 9123584 (Version 1)
Quarter: 2013Q1

REPORT INFORMATION
  Report Type: Spontaneous
  Country: US (occurrence: US)
  Receive Date: 20130227
  Receipt Date: 20130227
  Transmission Date: 20140127
  Serious: No
  Sender: FDA-Public Use
  Company Number: US-009507513-1302USA012348

PATIENT
  Sex: Male

DRUGS (2)
  1. DULERA [Suspect]
     Indication: COUGH
     Route: 055
  2. IBUPROFEN [Concomitant]

REACTIONS (1)
  - Lip swelling [Recovered/Resolved]
